FAERS Safety Report 9621301 (Version 2)
Quarter: 2013Q4

REPORT INFORMATION
  Report Type: Report from Study
  Country: US (occurrence: US)
  Receive Date: 20131015
  Receipt Date: 20131025
  Transmission Date: 20140711
  Serious: Yes (Hospitalization)
  Sender: FDA-Public Use
  Company Number: US-US-EMD SERONO, INC.-7242267

PATIENT
  Age: 53 Year
  Sex: Female

DRUGS (7)
  1. REBIF [Suspect]
     Indication: PRODUCT USED FOR UNKNOWN INDICATION
     Route: 058
     Dates: start: 20131005
  2. REBIF [Suspect]
     Route: 058
     Dates: start: 20131009, end: 20131016
  3. REBIF [Suspect]
  4. TYLENOL                            /00020001/ [Concomitant]
     Indication: PREMEDICATION
  5. ORAL CONTRACEPTIVE NOS [Concomitant]
     Indication: PRODUCT USED FOR UNKNOWN INDICATION
  6. LOVENOX                            /00889602/ [Concomitant]
     Indication: DEEP VEIN THROMBOSIS
  7. LOVENOX                            /00889602/ [Concomitant]
     Indication: THROMBOSIS

REACTIONS (11)
  - Syncope [Recovered/Resolved]
  - Dizziness [Unknown]
  - Head injury [Unknown]
  - Fall [Unknown]
  - Contusion [Not Recovered/Not Resolved]
  - Laceration [Unknown]
  - Coagulation test abnormal [Recovered/Resolved]
  - Local swelling [Not Recovered/Not Resolved]
  - Limb discomfort [Not Recovered/Not Resolved]
  - Pain in extremity [Recovering/Resolving]
  - Injection site pain [Not Recovered/Not Resolved]
